FAERS Safety Report 4651971-X (Version None)
Quarter: 2005Q2

REPORT INFORMATION
  Report Type: 
  Country: None (occurrence: None)
  Receive Date: 20050502
  Receipt Date: 20050415
  Transmission Date: 20051028
  Serious: Yes (Hospitalization)
  Sender: FDA-Public Use
  Company Number: 2005BI001549

PATIENT
  Age: 24 Year
  Sex: Male

DRUGS (8)
  1. AVONEX [Suspect]
     Indication: RELAPSING-REMITTING MULTIPLE SCLEROSIS
     Dosage: 30 UG; QW; IM
     Route: 030
     Dates: start: 20030301
  2. NATALIZUMAB [Suspect]
     Indication: RELAPSING-REMITTING MULTIPLE SCLEROSIS
     Dosage: 300 MG;QW; IV
     Route: 042
     Dates: start: 20050113, end: 20050113
  3. REMERON [Concomitant]
  4. LEXAPRO [Concomitant]
  5. STEROIDS [Concomitant]
  6. AMANTADINE HCL [Concomitant]
  7. ADDERALL 10 [Concomitant]
  8. KLONOPIN [Concomitant]

REACTIONS (21)
  - ANXIETY [None]
  - ASTHENIA [None]
  - BLOOD PRESSURE INCREASED [None]
  - CHEST DISCOMFORT [None]
  - COGNITIVE DISORDER [None]
  - CONFUSIONAL STATE [None]
  - COORDINATION ABNORMAL [None]
  - DIFFICULTY IN WALKING [None]
  - DIZZINESS [None]
  - DYSPNOEA [None]
  - EPIGASTRIC DISCOMFORT [None]
  - ERYTHEMA [None]
  - FATIGUE [None]
  - FLUSHING [None]
  - HYPERSENSITIVITY [None]
  - INFUSION SITE REACTION [None]
  - LOSS OF PROPRIOCEPTION [None]
  - MULTIPLE SCLEROSIS RELAPSE [None]
  - PRURITUS [None]
  - RESPIRATORY RATE INCREASED [None]
  - VERTIGO [None]
